FAERS Safety Report 6527592-0 (Version None)
Quarter: 2010Q1

REPORT INFORMATION
  Report Type: 
  Country: None (occurrence: None)
  Receive Date: 20100105
  Receipt Date: 20091222
  Transmission Date: 20100710
  Serious: Yes (Hospitalization)
  Sender: FDA-Public Use
  Company Number: PHHY2009JP58907

PATIENT
  Age: 13 Year
  Sex: Male

DRUGS (3)
  1. TEGRETOL [Suspect]
     Indication: EPILEPSY
     Dosage: 100 MG/DAY
     Route: 048
     Dates: start: 20090120, end: 20091201
  2. TEGRETOL [Suspect]
     Dosage: 200 MG/DAY
     Route: 048
     Dates: start: 20091202, end: 20091216
  3. TEGRETOL [Suspect]
     Dosage: 300 MG/DAY
     Route: 048
     Dates: start: 20091217, end: 20091222

REACTIONS (12)
  - DRUG RASH WITH EOSINOPHILIA AND SYSTEMIC SYMPTOMS [None]
  - EPSTEIN-BARR VIRUS INFECTION [None]
  - ERYTHEMA [None]
  - INFECTIOUS MONONUCLEOSIS [None]
  - LIVER DISORDER [None]
  - LYMPHADENOPATHY [None]
  - NAUSEA [None]
  - PHARYNGEAL ERYTHEMA [None]
  - PRURITUS GENERALISED [None]
  - PYREXIA [None]
  - RASH [None]
  - VOMITING [None]
